FAERS Safety Report 8508320-6 (Version None)
Quarter: 2012Q3

REPORT INFORMATION
  Report Type: 
  Country: None (occurrence: None)
  Receive Date: 20120713
  Receipt Date: 20120703
  Transmission Date: 20120928
  Serious: Yes (Other)
  Sender: FDA-Public Use
  Company Number: JP-JNJFOC-20120702918

PATIENT
  Age: 16 Year
  Sex: Female

DRUGS (9)
  1. TACROLIMUS [Suspect]
     Indication: JUVENILE ARTHRITIS
     Route: 065
     Dates: start: 20060101
  2. RHEUMATREX [Suspect]
     Indication: JUVENILE ARTHRITIS
     Route: 048
     Dates: start: 20061101, end: 20070801
  3. PREDNISOLONE [Suspect]
     Indication: JUVENILE ARTHRITIS
     Route: 065
     Dates: start: 20060101
  4. REMICADE [Suspect]
     Indication: JUVENILE ARTHRITIS
     Route: 042
  5. REMICADE [Suspect]
     Indication: HISTIOCYTOSIS HAEMATOPHAGIC
     Route: 042
  6. CYCLOSPORINE [Suspect]
     Indication: JUVENILE ARTHRITIS
     Route: 065
     Dates: start: 20060101
  7. METHYLPREDNISOLONE [Suspect]
     Route: 065
     Dates: start: 20060101, end: 20060101
  8. ETANERCEPT [Suspect]
     Indication: JUVENILE ARTHRITIS
     Route: 065
     Dates: end: 20070801
  9. METHYLPREDNISOLONE [Suspect]
     Indication: JUVENILE ARTHRITIS
     Route: 042
     Dates: start: 20060101, end: 20060101

REACTIONS (2)
  - PNEUMOCYSTIS JIROVECI PNEUMONIA [None]
  - DRUG INEFFECTIVE [None]
